FAERS Safety Report 5768071-8 (Version None)
Quarter: 2008Q2

REPORT INFORMATION
  Report Type: 
  Country: None (occurrence: None)
  Receive Date: 20080612
  Receipt Date: 20071022
  Transmission Date: 20081010
  Serious: No
  Sender: FDA-Public Use
  Company Number: US-ASTRAZENECA-2007UW24578

PATIENT
  Sex: Female

DRUGS (2)
  1. FASLODEX [Suspect]
     Indication: BREAST CANCER
     Route: 030
     Dates: start: 20071001
  2. TAMOXIFEN CITRATE [Concomitant]
     Dates: start: 20060101, end: 20070101

REACTIONS (2)
  - ARTHRALGIA [None]
  - DRY SKIN [None]
